FAERS Safety Report 8555744-7 (Version None)
Quarter: 2012Q3

REPORT INFORMATION
  Report Type: 
  Country: None (occurrence: None)
  Receive Date: 20120801
  Receipt Date: 20120718
  Transmission Date: 20120928
  Serious: Yes (Other)
  Sender: FDA-Public Use
  Company Number: GB-RANBAXY-2012R1-58242

PATIENT
  Age: 27 Year
  Sex: Male
  Weight: 85 kg

DRUGS (6)
  1. FLUOXETINE HCL [Suspect]
     Indication: PRODUCT USED FOR UNKNOWN INDICATION
     Dosage: UNK
     Route: 065
     Dates: start: 20120217, end: 20120417
  2. CINCHOCAINE [Concomitant]
     Indication: PRODUCT USED FOR UNKNOWN INDICATION
     Dosage: UNK
     Route: 065
     Dates: start: 20120430, end: 20120507
  3. GERMOLOIDS [Concomitant]
     Indication: PRODUCT USED FOR UNKNOWN INDICATION
     Dosage: UNK
     Route: 065
     Dates: start: 20120704
  4. FUCIDINE CAP [Concomitant]
     Indication: PRODUCT USED FOR UNKNOWN INDICATION
     Dosage: UNK
     Route: 065
     Dates: start: 20120430, end: 20120507
  5. DOTHIEPIN HYDROCHLORIDE [Concomitant]
     Indication: PRODUCT USED FOR UNKNOWN INDICATION
     Dosage: UNK
     Route: 065
     Dates: start: 20120704
  6. FLUOXETINE HCL [Suspect]
     Dosage: UNK
     Route: 065
     Dates: start: 20120619

REACTIONS (3)
  - ERECTION INCREASED [None]
  - NOCTURIA [None]
  - PRIAPISM [None]
